FAERS Safety Report 5318900-7 (Version None)
Quarter: 2007Q2

REPORT INFORMATION
  Report Type: 
  Country: None (occurrence: None)
  Receive Date: 20070503
  Receipt Date: 20070427
  Transmission Date: 20071010
  Serious: Yes (Hospitalization)
  Sender: FDA-Public Use
  Company Number: 2007-02098

PATIENT
  Age: 41 Year
  Sex: Male

DRUGS (1)
  1. DISULFIRAM [Suspect]
     Indication: ALCOHOLISM
     Dosage: 500 MG, DAILY, UNK
     Dates: start: 20040101, end: 20060101

REACTIONS (2)
  - DRUG TOXICITY [None]
  - WERNICKE'S ENCEPHALOPATHY [None]
